FAERS Safety Report 13910275 (Version 3)
Quarter: 2017Q4

REPORT INFORMATION
  Report Type: Spontaneous
  Country: US (occurrence: US)
  Receive Date: 20170828
  Receipt Date: 20171003
  Transmission Date: 20180320
  Serious: Yes (Hospitalization, Other)
  Sender: FDA-Public Use
  Company Number: US-009507513-1708USA011717

PATIENT
  Age: 12 Year
  Sex: Female

DRUGS (1)
  1. THERAPY UNSPECIFIED [Suspect]
     Active Substance: UNSPECIFIED INGREDIENT

REACTIONS (4)
  - Cyanosis [Recovered/Resolved]
  - Syncope [Recovered/Resolved]
  - Asthma [Recovered/Resolved]
  - Breath sounds abnormal [Recovered/Resolved]
